FAERS Safety Report 11293342 (Version 6)
Quarter: 2017Q3

REPORT INFORMATION
  Report Type: Spontaneous
  Country: PT (occurrence: PT)
  Receive Date: 20150722
  Receipt Date: 20170802
  Transmission Date: 20171127
  Serious: Yes (Other)
  Sender: FDA-Public Use
  Company Number: PT-ASTRAZENECA-2015SE58917

PATIENT
  Age: 67 Year
  Sex: Female

DRUGS (13)
  1. IRESSA [Suspect]
     Active Substance: GEFITINIB
     Indication: LUNG ADENOCARCINOMA
     Route: 048
     Dates: start: 20150210
  2. VIARTRIL S [Concomitant]
     Indication: MACULAR DEGENERATION
     Route: 048
     Dates: start: 2012
  3. VIARTRIL S [Concomitant]
     Indication: PRODUCT USED FOR UNKNOWN INDICATION
     Route: 048
     Dates: start: 2012
  4. LUTEIN [Concomitant]
     Active Substance: LUTEIN
  5. OCULOTECT [Concomitant]
     Indication: MACULAR DEGENERATION
     Route: 065
  6. ATACAND [Concomitant]
     Active Substance: CANDESARTAN CILEXETIL
     Indication: HYPERTENSION
     Route: 048
     Dates: start: 2012
  7. OMEPRAZOLE. [Concomitant]
     Active Substance: OMEPRAZOLE
     Indication: PRODUCT USED FOR UNKNOWN INDICATION
     Route: 048
  8. OCULOTECT [Concomitant]
     Indication: PRODUCT USED FOR UNKNOWN INDICATION
     Route: 065
  9. VIARTRIL S [Concomitant]
     Indication: OSTEOARTHRITIS
     Route: 048
     Dates: start: 2012
  10. OMEGA-3 ACIDS [Concomitant]
     Active Substance: OMEGA-3 FATTY ACIDS
  11. VITAMINS NOS [Concomitant]
     Active Substance: VITAMINS
     Route: 048
  12. MINERALS NOS [Concomitant]
     Active Substance: MINERALS
  13. PROVIDONE [Concomitant]
     Dosage: 50MG/ML

REACTIONS (10)
  - Hair growth abnormal [Not Recovered/Not Resolved]
  - Corneal erosion [Not Recovered/Not Resolved]
  - Alopecia [Not Recovered/Not Resolved]
  - Paronychia [Not Recovered/Not Resolved]
  - Pyogenic granuloma [Not Recovered/Not Resolved]
  - Nail disorder [Not Recovered/Not Resolved]
  - Gingival bleeding [Not Recovered/Not Resolved]
  - Dry mouth [Not Recovered/Not Resolved]
  - Growth of eyelashes [Not Recovered/Not Resolved]
  - Dry eye [Not Recovered/Not Resolved]

NARRATIVE: CASE EVENT DATE: 2015
